FAERS Safety Report 6800664-9 (Version None)
Quarter: 2010Q2

REPORT INFORMATION
  Report Type: 
  Country: None (occurrence: None)
  Receive Date: 20100629
  Receipt Date: 20100629
  Transmission Date: 20101027
  Serious: Yes (Death, Hospitalization)
  Sender: FDA-Public Use
  Company Number: AT-ELI_LILLY_AND_COMPANY-AT201005000365

PATIENT
  Age: 67 Year
  Sex: Female

DRUGS (11)
  1. PEMETREXED [Suspect]
     Indication: NON-SMALL CELL LUNG CANCER
     Dosage: 500 MG, DAY ONE EVERY 21 DAYS
     Route: 042
     Dates: start: 20090903
  2. CETUXIMAB [Suspect]
     Indication: NON-SMALL CELL LUNG CANCER
     Dosage: 400 MG/M2,
     Route: 042
     Dates: start: 20090903, end: 20090903
  3. CETUXIMAB [Suspect]
     Dosage: 250 MG/M2, WEEKLY (1/W)
     Route: 042
  4. CISPLATIN [Suspect]
     Indication: NON-SMALL CELL LUNG CANCER
     Dosage: 75 MG, DAY 1 EVERY 21 DAYS
     Route: 042
     Dates: start: 20090903
  5. ROZEX [Concomitant]
     Dosage: UNK, UNKNOWN
     Dates: start: 20090918
  6. POLYETHYLENE GLYCOL [Concomitant]
     Dates: start: 20091005
  7. MAGNOSOLV [Concomitant]
     Dates: start: 20091005
  8. CALCIUM CARBONATE [Concomitant]
     Dates: start: 20091007, end: 20091101
  9. LANSOPRAZOLE [Concomitant]
     Dates: start: 20090825, end: 20091101
  10. ARANESP [Concomitant]
     Dates: start: 20091022, end: 20091022
  11. ARANESP [Concomitant]
     Dates: start: 20091031, end: 20091031

REACTIONS (2)
  - PAIN [None]
  - PNEUMONIA [None]
